FAERS Safety Report 7739851-4 (Version None)
Quarter: 2011Q3

REPORT INFORMATION
  Report Type: 
  Country: None (occurrence: None)
  Receive Date: 20110909
  Receipt Date: 20110831
  Transmission Date: 20111222
  Serious: Yes (Other)
  Sender: FDA-Public Use
  Company Number: PHHY2011BR79105

PATIENT
  Age: 76 Year
  Sex: Female

DRUGS (4)
  1. HYDROXYUREA [Concomitant]
  2. INTERFERON [Concomitant]
  3. IMATINIB MESYLATE [Suspect]
     Indication: CHRONIC MYELOID LEUKAEMIA
  4. ANGIOTENSIN CONVERTING ENZYME BLOCKERS [Concomitant]

REACTIONS (1)
  - RENAL FAILURE CHRONIC [None]
